FAERS Safety Report 4313151-7 (Version None)
Quarter: 2004Q1

REPORT INFORMATION
  Report Type: 
  Country: None (occurrence: None)
  Receive Date: 20040304
  Receipt Date: 20040212
  Transmission Date: 20041129
  Serious: Yes (Other)
  Sender: FDA-Public Use
  Company Number: JP_040202637

PATIENT
  Age: 62 Year
  Sex: Female

DRUGS (6)
  1. ONCOVIN [Suspect]
     Indication: BLADDER SQUAMOUS CELL CARCINOMA STAGE UNSPECIFIED
     Dosage: 1 MG
     Dates: start: 20020509
  2. CISPLATIN [Concomitant]
  3. METHOTREXATE [Concomitant]
  4. ADRIAMYCIN (DOXORUBICIN) [Concomitant]
  5. PEPLOMYCIN [Concomitant]
  6. RADIATION THERAPY [Concomitant]

REACTIONS (4)
  - ALANINE AMINOTRANSFERASE INCREASED [None]
  - ASPARTATE AMINOTRANSFERASE INCREASED [None]
  - HEPATIC FUNCTION ABNORMAL [None]
  - PANCYTOPENIA [None]
